FAERS Safety Report 5560087-X (Version None)
Quarter: 2007Q4

REPORT INFORMATION
  Report Type: 
  Country: None (occurrence: None)
  Receive Date: 20071214
  Receipt Date: 20071026
  Transmission Date: 20080405
  Serious: Yes (Hospitalization)
  Sender: FDA-Public Use
  Company Number: US-ABBOTT-07P-163-0422555-00

PATIENT
  Sex: Female

DRUGS (4)
  1. HUMIRA [Suspect]
     Indication: CROHN'S DISEASE
     Dosage: LOADING DOSE
     Route: 058
     Dates: start: 20070301, end: 20070301
  2. HUMIRA [Suspect]
     Dosage: LOADING DOSE
     Route: 058
  3. HUMIRA [Suspect]
     Route: 058
  4. HUMIRA [Suspect]
     Route: 058
     Dates: start: 20070701

REACTIONS (3)
  - ACCIDENTAL EXPOSURE [None]
  - CROHN'S DISEASE [None]
  - INJECTION SITE HAEMORRHAGE [None]
